FAERS Safety Report 6033804-2 (Version None)
Quarter: 2009Q1

REPORT INFORMATION
  Report Type: 
  Country: None (occurrence: None)
  Receive Date: 20090112
  Receipt Date: 20081230
  Transmission Date: 20090719
  Serious: Yes (Hospitalization)
  Sender: FDA-Public Use
  Company Number: US-ELI_LILLY_AND_COMPANY-US200812006161

PATIENT
  Sex: Male
  Weight: 81.8 kg

DRUGS (13)
  1. PEMETREXED [Suspect]
     Indication: NON-SMALL CELL LUNG CANCER STAGE IV
     Dosage: 400 MG/M2, OTHER
     Route: 042
     Dates: start: 20080625
  2. GEMCITABINE HCL [Suspect]
     Indication: NON-SMALL CELL LUNG CANCER STAGE IV
     Dosage: 1200 MG/M2, OTHER
     Route: 042
     Dates: start: 20080625
  3. BEVACIZUMAB [Suspect]
     Indication: NON-SMALL CELL LUNG CANCER STAGE IV
     Dosage: 10 MG/KG, OTHER
     Route: 042
     Dates: start: 20080625
  4. FOLIC ACID [Concomitant]
     Dates: start: 20080609
  5. VITAMIN B-12 [Concomitant]
     Dates: start: 20080609
  6. ACTOS [Concomitant]
  7. ACYCLOVIR [Concomitant]
  8. GLYBURIDE [Concomitant]
     Dosage: UNK, UNK
  9. METFORMIN [Concomitant]
  10. HUMULIN /00646001/ [Concomitant]
  11. LIPITOR [Concomitant]
  12. NOVOLIN [Concomitant]
  13. VERAPAMIL [Concomitant]

REACTIONS (1)
  - OTITIS MEDIA [None]
